FAERS Safety Report 4586387-8 (Version None)
Quarter: 2005Q1

REPORT INFORMATION
  Report Type: 
  Country: None (occurrence: None)
  Receive Date: 20050125
  Receipt Date: 20040909
  Transmission Date: 20050727
  Serious: No
  Sender: FDA-Public Use
  Company Number: USA040977810

PATIENT
  Sex: Female

DRUGS (2)
  1. FORTEO [Suspect]
  2. EVISTA [Suspect]

REACTIONS (4)
  - DRUG INEFFECTIVE [None]
  - MALAISE [None]
  - MEMORY IMPAIRMENT [None]
  - MULTIPLE FRACTURES [None]
